FAERS Safety Report 9201215 (Version 1)
Quarter: 2013Q2

REPORT INFORMATION
  Report Type: Spontaneous
  Country: CN (occurrence: CN)
  Receive Date: 20130401
  Receipt Date: 20130401
  Transmission Date: 20140414
  Serious: Yes (Hospitalization)
  Sender: FDA-Public Use
  Company Number: PHHY2013CN030452

PATIENT
  Age: 77 Year
  Sex: Female

DRUGS (4)
  1. ACLASTA [Suspect]
     Indication: OSTEOPOROSIS
     Dosage: 5MG/100ML ONE NEEDLE PER YEAR
     Route: 042
  2. ACLASTA [Suspect]
     Dosage: 5MG/100ML ONE NEEDLE PER YEAR
     Route: 042
  3. ACLASTA [Suspect]
     Dosage: 5MG/100ML ONE NEEDLE PER YEAR
     Route: 042
     Dates: start: 20130324
  4. CALCIUM [Concomitant]

REACTIONS (7)
  - Fracture [Unknown]
  - Pyrexia [Recovered/Resolved]
  - Headache [Recovering/Resolving]
  - Dizziness [Recovering/Resolving]
  - Nausea [Recovering/Resolving]
  - Diarrhoea [Recovering/Resolving]
  - Drug ineffective [Unknown]
